FAERS Safety Report 8008319-2 (Version None)
Quarter: 2011Q4

REPORT INFORMATION
  Report Type: 
  Country: None (occurrence: None)
  Receive Date: 20111222
  Receipt Date: 20111222
  Transmission Date: 20120403
  Serious: Yes (Other)
  Sender: FDA-Public Use
  Company Number: None

PATIENT
  Sex: Male
  Weight: 122.4712 kg

DRUGS (2)
  1. SMARTSITE INFUSION SET #11225954 0.2 MICRON LOW PROTEIN BINDING FILTER [Suspect]
  2. ERBITUX [Suspect]
     Indication: COLON CANCER
     Dosage: 1,245 MG EVERY 14 DAYS IV INFUSION
     Route: 042
     Dates: start: 20110711

REACTIONS (1)
  - DEVICE OCCLUSION [None]
